FAERS Safety Report 14222309 (Version 2)
Quarter: 2017Q4

REPORT INFORMATION
  Report Type: Spontaneous
  Country: IT (occurrence: IT)
  Receive Date: 20171124
  Receipt Date: 20171201
  Transmission Date: 20180321
  Serious: Yes (Death, Other)
  Sender: FDA-Public Use
  Company Number: IT-TAKEDA-2017TUS024697

PATIENT
  Age: 65 Year

DRUGS (1)
  1. ICLUSIG [Suspect]
     Active Substance: PONATINIB
     Indication: PRODUCT USED FOR UNKNOWN INDICATION
     Dosage: UNK
     Route: 048

REACTIONS (3)
  - Skin exfoliation [Fatal]
  - Erythema [Fatal]
  - Dermatitis exfoliative generalised [Fatal]

NARRATIVE: CASE EVENT DATE: 20151101
